FAERS Safety Report 9365791 (Version 1)
Quarter: 2013Q2

REPORT INFORMATION
  Report Type: Spontaneous
  Country: FR (occurrence: FR)
  Receive Date: 20130625
  Receipt Date: 20130625
  Transmission Date: 20140414
  Serious: Yes (Death)
  Sender: FDA-Public Use
  Company Number: FR-ROCHE-1241079

PATIENT
  Age: 98 Year
  Sex: Female

DRUGS (8)
  1. ROCEPHINE [Suspect]
     Indication: BRONCHITIS
     Route: 065
  2. FUROSEMIDE TEVA [Suspect]
     Indication: HYPERTENSION
     Dosage: DIVISIBLE TABLET, TEVA
     Route: 048
     Dates: start: 20130604, end: 20130605
  3. FUROSEMIDE [Suspect]
     Indication: HYPERTENSION
     Route: 065
     Dates: end: 20130604
  4. TAMOXIFENE [Suspect]
     Indication: PRODUCT USED FOR UNKNOWN INDICATION
     Route: 065
  5. BRICANYL [Suspect]
     Indication: PRODUCT USED FOR UNKNOWN INDICATION
     Route: 065
  6. SERETIDE [Suspect]
     Indication: PRODUCT USED FOR UNKNOWN INDICATION
     Route: 065
  7. DOLIPRANE [Suspect]
     Indication: PRODUCT USED FOR UNKNOWN INDICATION
     Route: 065
  8. ZOPICLONE [Concomitant]

REACTIONS (1)
  - Death [Fatal]
